FAERS Safety Report 5598250-4 (Version None)
Quarter: 2008Q1

REPORT INFORMATION
  Report Type: 
  Country: None (occurrence: None)
  Receive Date: 20080122
  Receipt Date: 20080108
  Transmission Date: 20080703
  Serious: Yes (Hospitalization, Other)
  Sender: FDA-Public Use
  Company Number: US-AMGEN-US231537

PATIENT
  Sex: Male
  Weight: 100.3 kg

DRUGS (7)
  1. ARANESP [Suspect]
     Indication: RENAL FAILURE CHRONIC
     Route: 058
     Dates: start: 20070324, end: 20070615
  2. PROCRIT [Suspect]
     Indication: RENAL FAILURE CHRONIC
     Dates: start: 20050224, end: 20070324
  3. LASIX [Concomitant]
  4. DARVOCET-N 100 [Concomitant]
  5. DOXAZOSIN [Concomitant]
  6. POTASSIUM CHLORIDE [Concomitant]
  7. CARDURA [Concomitant]

REACTIONS (2)
  - ANAEMIA [None]
  - BONE MARROW FAILURE [None]
